FAERS Safety Report 9956297 (Version 1)
Quarter: 2014Q1

REPORT INFORMATION
  Report Type: Report from Study
  Country: US (occurrence: US)
  Receive Date: 20140304
  Receipt Date: 20140304
  Transmission Date: 20141002
  Serious: No
  Sender: FDA-Public Use
  Company Number: US-ABBVIE-13P-163-1086041-00

PATIENT
  Age: 40 Year
  Sex: Male

DRUGS (6)
  1. HUMIRA [Suspect]
     Indication: CROHN^S DISEASE
     Dosage: LOADING DOSE
     Dates: start: 20130419
  2. HUMIRA [Suspect]
     Dosage: LOADING DOSE
     Dates: start: 20130503
  3. PREDNISONE [Concomitant]
     Indication: CROHN^S DISEASE
  4. KEPRA [Concomitant]
     Indication: CONVULSION
  5. BYSTOLIC [Concomitant]
     Indication: BLOOD PRESSURE
  6. FLONASE [Concomitant]
     Indication: HYPERSENSITIVITY
     Dosage: 1 SQUIRT IN EACH NOSTRIL PER DAY

REACTIONS (4)
  - Fatigue [Recovering/Resolving]
  - Influenza [Recovering/Resolving]
  - Myalgia [Recovering/Resolving]
  - Pyrexia [Recovering/Resolving]
